FAERS Safety Report 10361848 (Version 1)
Quarter: 2014Q3

REPORT INFORMATION
  Report Type: Spontaneous
  Country: JP (occurrence: JP)
  Receive Date: 20140805
  Receipt Date: 20140805
  Transmission Date: 20150326
  Serious: Yes (Hospitalization)
  Sender: FDA-Public Use
  Company Number: PHHY2013JP159416

PATIENT
  Age: 91 Year
  Sex: Female

DRUGS (4)
  1. EXJADE [Suspect]
     Active Substance: DEFERASIROX
     Dosage: 250 MG, DAILY
  2. EXJADE [Suspect]
     Active Substance: DEFERASIROX
     Indication: MYELODYSPLASTIC SYNDROME
     Dosage: 500 MG, DAILY
     Dates: start: 201105
  3. EXJADE [Suspect]
     Active Substance: DEFERASIROX
     Dosage: 125 MG, DAILY
     Dates: start: 201107
  4. EXJADE [Suspect]
     Active Substance: DEFERASIROX
     Dosage: 500 MG, DAILY
     Dates: start: 201111

REACTIONS (2)
  - Pyrexia [Unknown]
  - Pneumonia [Unknown]
